FAERS Safety Report 7954787-1 (Version None)
Quarter: 2011Q4

REPORT INFORMATION
  Report Type: 
  Country: None (occurrence: None)
  Receive Date: 20111202
  Receipt Date: 20111115
  Transmission Date: 20120403
  Serious: Yes (Hospitalization, Other)
  Sender: FDA-Public Use
  Company Number: FR-ROCHE-GNE310358

PATIENT
  Age: 69 Year
  Sex: Male

DRUGS (18)
  1. RANIBIZUMAB [Suspect]
     Route: 050
     Dates: start: 20091208
  2. RANIBIZUMAB [Suspect]
     Route: 050
     Dates: start: 20110201
  3. BRINZOLAMIDE [Concomitant]
     Dates: start: 20060101
  4. RANIBIZUMAB [Suspect]
     Route: 050
     Dates: start: 20080919
  5. RANIBIZUMAB [Suspect]
     Route: 050
     Dates: start: 20090326
  6. RANIBIZUMAB [Suspect]
     Route: 050
     Dates: start: 20090119
  7. RANIBIZUMAB [Suspect]
     Route: 050
     Dates: start: 20100316
  8. RANIBIZUMAB [Suspect]
     Route: 050
     Dates: start: 20110421
  9. RANIBIZUMAB [Suspect]
     Indication: AGE-RELATED MACULAR DEGENERATION
     Dosage: 0.05 ML, UNK
     Route: 050
     Dates: start: 20080616
  10. TRIMETAZIDINE HYDROCHLORIDE [Concomitant]
     Dates: start: 20060101
  11. RANIBIZUMAB [Suspect]
     Route: 050
     Dates: start: 20081120
  12. RANIBIZUMAB [Suspect]
     Route: 050
     Dates: start: 20090706
  13. RANIBIZUMAB [Suspect]
     Route: 050
     Dates: start: 20100427
  14. XALATAN [Concomitant]
     Indication: PRODUCT USED FOR UNKNOWN INDICATION
     Dates: start: 20060101
  15. RANIBIZUMAB [Suspect]
     Route: 050
     Dates: start: 20110628
  16. RANIBIZUMAB [Suspect]
     Route: 050
     Dates: start: 20090818
  17. RANIBIZUMAB [Suspect]
     Route: 050
     Dates: start: 20091105
  18. RANIBIZUMAB [Suspect]
     Route: 050
     Dates: start: 20110524

REACTIONS (4)
  - INTRAOCULAR PRESSURE INCREASED [None]
  - IRIDOCELE [None]
  - OCULAR HYPERTENSION [None]
  - RETINAL DETACHMENT [None]
